FAERS Safety Report 16083815 (Version 2)
Quarter: 2019Q2

REPORT INFORMATION
  Report Type: Spontaneous
  Country: US (occurrence: US)
  Receive Date: 20190318
  Receipt Date: 20190412
  Transmission Date: 20190711
  Serious: Yes (Other)
  Sender: FDA-Public Use
  Company Number: US-ASTRAZENECA-2019SE28885

PATIENT
  Age: 20064 Day
  Sex: Male

DRUGS (2)
  1. BRILINTA [Suspect]
     Active Substance: TICAGRELOR
     Indication: STENT PLACEMENT
     Route: 048
     Dates: start: 20171104
  2. BRILINTA [Suspect]
     Active Substance: TICAGRELOR
     Indication: ANGIOPLASTY
     Route: 048
     Dates: start: 20171104

REACTIONS (11)
  - Renal impairment [Unknown]
  - Product use issue [Unknown]
  - Myocardial infarction [Unknown]
  - Hydronephrosis [Unknown]
  - Abdominal pain [Recovered/Resolved]
  - Cardiac disorder [Unknown]
  - Off label use [Unknown]
  - Renal mass [Unknown]
  - Platelet count decreased [Unknown]
  - Coronary artery disease [Unknown]
  - Thrombosis [Unknown]

NARRATIVE: CASE EVENT DATE: 20171120
